FAERS Safety Report 4780910-6 (Version None)
Quarter: 2005Q3

REPORT INFORMATION
  Report Type: 
  Country: None (occurrence: None)
  Receive Date: 20050927
  Receipt Date: 20050927
  Transmission Date: 20060218
  Serious: Yes (Life-Threatening)
  Sender: FDA-Public Use
  Company Number: None

PATIENT
  Age: 62 Year
  Sex: Male
  Weight: 90.7194 kg

DRUGS (2)
  1. PACLITAXEL [Suspect]
     Indication: LUNG NEOPLASM MALIGNANT
     Dosage: 475MG IV
     Route: 042
     Dates: start: 20050908
  2. CARBOPLATIN [Suspect]
     Dosage: 570 MG IV
     Route: 042
     Dates: start: 20050908

REACTIONS (3)
  - FULL BLOOD COUNT [None]
  - FULL BLOOD COUNT ABNORMAL [None]
  - PAIN [None]
